FAERS Safety Report 8795617 (Version 2)
Quarter: 2012Q4

REPORT INFORMATION
  Report Type: 
  Country: US (occurrence: US)
  Receive Date: 20120919
  Receipt Date: 20121023
  Transmission Date: 20130627
  Serious: No
  Sender: FDA-Public Use
  Company Number: US-B.I. PHARMACEUTICALS,INC./RIDGEFIELD-2012-BP-20950BP

PATIENT
  Age: 85 None
  Sex: Female

DRUGS (7)
  1. SPIRIVA [Suspect]
     Indication: DYSPNOEA
     Dosage: 18 mcg
     Route: 055
     Dates: start: 201109, end: 201208
  2. SPIRIVA [Suspect]
     Indication: LUNG DISORDER
     Dosage: 18 mcg
     Route: 055
     Dates: start: 201209
  3. QUINAPRIL [Concomitant]
     Indication: HYPERTENSION
     Dosage: 20 mg
     Route: 048
     Dates: start: 2004
  4. ARICEPT [Concomitant]
     Indication: MEMORY IMPAIRMENT
     Dosage: 10 mg
     Route: 048
     Dates: start: 2008
  5. NAMENDA [Concomitant]
     Indication: MEMORY IMPAIRMENT
     Dosage: 20 mg
     Route: 048
     Dates: start: 2008
  6. BONE GUARDIAN [Concomitant]
     Indication: ROUTINE HEALTH MAINTENANCE
     Route: 048
     Dates: start: 2002
  7. MULTIVITAMIN [Concomitant]
     Indication: SUPPLEMENTATION THERAPY
     Route: 048

REACTIONS (8)
  - Dysuria [Not Recovered/Not Resolved]
  - Dysuria [Not Recovered/Not Resolved]
  - Dry mouth [Not Recovered/Not Resolved]
  - Cystitis [Not Recovered/Not Resolved]
  - Pre-existing condition improved [Not Recovered/Not Resolved]
  - Dysphonia [Not Recovered/Not Resolved]
  - Urinary retention [Recovered/Resolved]
  - Infection [Recovered/Resolved]
